FAERS Safety Report 9205475 (Version 2)
Quarter: 2014Q1

REPORT INFORMATION
  Report Type: Spontaneous
  Country: US (occurrence: US)
  Receive Date: 20130403
  Receipt Date: 20140213
  Transmission Date: 20141002
  Serious: Yes (Hospitalization)
  Sender: FDA-Public Use
  Company Number: US-BIOGENIDEC-2013BI029168

PATIENT
  Age: 32 Year
  Sex: Female

DRUGS (1)
  1. TYSABRI [Suspect]
     Indication: MULTIPLE SCLEROSIS
     Route: 042
     Dates: start: 20120517

REACTIONS (3)
  - Musculoskeletal disorder [Recovered/Resolved]
  - Ovarian cystectomy [Recovered/Resolved]
  - Multiple sclerosis relapse [Recovered/Resolved]
